FAERS Safety Report 10210272 (Version 2)
Quarter: 2014Q2

REPORT INFORMATION
  Report Type: Spontaneous
  Country: US (occurrence: US)
  Receive Date: 20140602
  Receipt Date: 20140613
  Transmission Date: 20141212
  Serious: Yes (Other)
  Sender: FDA-Public Use
  Company Number: US-PFIZER INC-2014148603

PATIENT
  Age: 75 Year
  Sex: Female
  Weight: 50.79 kg

DRUGS (2)
  1. CELEBREX [Suspect]
     Indication: ARTHRITIS
     Dosage: UNK
     Dates: start: 2007, end: 2007
  2. VICODIN [Concomitant]
     Indication: BACK DISORDER
     Dosage: (HYDROCODONE BITARTRATE 5MG, PARACETAMOL 500 MG), ONCE EVERY COUPLE OF DAYS

REACTIONS (1)
  - Hypertension [Recovered/Resolved]
